FAERS Safety Report 8836872 (Version 2)
Quarter: 2012Q4

REPORT INFORMATION
  Report Type: 
  Country: CZ (occurrence: CZ)
  Receive Date: 20121012
  Receipt Date: 20121219
  Transmission Date: 20130627
  Serious: Yes (Hospitalization, Disabling)
  Sender: FDA-Public Use
  Company Number: CZ-SANOFI-AVENTIS-2012SA073754

PATIENT
  Age: 66 Year
  Sex: Female

DRUGS (17)
  1. PREDNISON [Suspect]
     Indication: SEROPOSITIVE RA
     Route: 065
     Dates: start: 20120502
  2. PREDNISON [Suspect]
     Indication: RHEUMATOID ARTHRITIS
     Route: 065
     Dates: start: 20120502
  3. ARAVA [Suspect]
     Indication: SEROPOSITIVE RA
     Route: 048
     Dates: start: 20060228, end: 20120305
  4. ARAVA [Suspect]
     Indication: RHEUMATOID ARTHRITIS
     Route: 048
     Dates: start: 20060228, end: 20120305
  5. ETANERCEPT [Suspect]
     Indication: PSORIATIC ARTHRITIS
     Route: 058
     Dates: start: 20090119, end: 20120305
  6. MONO MACK [Concomitant]
  7. COLECALCIFEROL [Concomitant]
  8. LOZAP [Concomitant]
  9. HUMULIN [Concomitant]
  10. CARDILAN [Concomitant]
  11. PREDUCTAL [Concomitant]
  12. TORVACARD [Concomitant]
  13. AMILORIDE HYDROCHLORIDE/HYDROCHLOROTHIAZIDE [Concomitant]
  14. APO-METOPROLOL [Concomitant]
  15. KALNORMIN [Concomitant]
  16. LETROX [Concomitant]
  17. LANZUL [Concomitant]

REACTIONS (5)
  - Bronchopleural fistula [Not Recovered/Not Resolved]
  - Pneumothorax [Not Recovered/Not Resolved]
  - Infectious pleural effusion [Not Recovered/Not Resolved]
  - Tuberculous pleurisy [Not Recovered/Not Resolved]
  - Cell-mediated immune deficiency [Not Recovered/Not Resolved]
